FAERS Safety Report 6145905-9 (Version None)
Quarter: 2009Q2

REPORT INFORMATION
  Report Type: 
  Country: None (occurrence: None)
  Receive Date: 20090407
  Receipt Date: 20090323
  Transmission Date: 20091009
  Serious: Yes (Death, Hospitalization)
  Sender: FDA-Public Use
  Company Number: CA-ROCHE-623065

PATIENT
  Age: 16 Year
  Sex: Male

DRUGS (8)
  1. ALL-TRANS-RETINOIC ACID [Suspect]
     Dosage: INDUCTION CHEMOTHERAPY
     Route: 065
  2. ALL-TRANS-RETINOIC ACID [Suspect]
     Dosage: CONSOLIDATION THERAPY REDUCED DOSE
     Route: 065
  3. ALL-TRANS-RETINOIC ACID [Suspect]
     Dosage: MAINTENANCE THERAPY
     Route: 065
  4. DAUNORUBICIN HCL [Suspect]
     Dosage: INDUCTION THERAPY
     Route: 065
  5. DAUNORUBICIN HCL [Suspect]
     Dosage: CONSOLIDATION THERAPY
     Route: 065
  6. CYTARABINE [Suspect]
     Dosage: INDUCTION THERAPY
     Route: 065
  7. MERCAPTOPURINE [Suspect]
     Dosage: CONSOLIDATION THERAPY
     Route: 065
  8. METHOTREXATE [Suspect]
     Dosage: CONSOLIDATION THERAPY
     Route: 048

REACTIONS (6)
  - ACUTE PROMYELOCYTIC LEUKAEMIA [None]
  - FEBRILE NEUTROPENIA [None]
  - MUCOSAL INFLAMMATION [None]
  - OESOPHAGEAL STENOSIS [None]
  - RETINOIC ACID SYNDROME [None]
  - TUMOUR LYSIS SYNDROME [None]
